FAERS Safety Report 25829244 (Version 1)
Quarter: 2025Q3

REPORT INFORMATION
  Report Type: Spontaneous
  Country: CA (occurrence: CA)
  Receive Date: 20250922
  Receipt Date: 20250922
  Transmission Date: 20251020
  Serious: Yes (Other)
  Sender: JOHNSON AND JOHNSON
  Company Number: CA-JNJFOC-20250928185

PATIENT
  Age: 77 Year
  Sex: Female

DRUGS (5)
  1. TOPAMAX [Suspect]
     Active Substance: TOPIRAMATE
     Indication: Chronic tic disorder
     Route: 065
  2. ARIPIPRAZOLE [Suspect]
     Active Substance: ARIPIPRAZOLE
     Indication: Chronic tic disorder
  3. PRAMIPEXOLE DIHYDROCHLORIDE [Concomitant]
     Active Substance: PRAMIPEXOLE DIHYDROCHLORIDE
     Indication: Parkinson^s disease
  4. LEVODOPA [Concomitant]
     Active Substance: LEVODOPA
     Indication: Parkinson^s disease
  5. GUANFACINE [Concomitant]
     Active Substance: GUANFACINE
     Indication: Chronic tic disorder

REACTIONS (6)
  - Parkinson^s disease [Unknown]
  - Cognitive disorder [Unknown]
  - Drug ineffective [Unknown]
  - Dyskinesia [Unknown]
  - Restlessness [Unknown]
  - Off label use [Unknown]
